FAERS Safety Report 7026318-4 (Version None)
Quarter: 2010Q4

REPORT INFORMATION
  Report Type: 
  Country: None (occurrence: None)
  Receive Date: 20101004
  Receipt Date: 20100928
  Transmission Date: 20110411
  Serious: Yes (Other)
  Sender: FDA-Public Use
  Company Number: BR-PFIZER INC-2010099599

PATIENT
  Age: 40 Year
  Sex: Female
  Weight: 62 kg

DRUGS (4)
  1. VIBRAMICINA [Suspect]
     Indication: UTERINE INFECTION
     Dosage: 100 MG, 2X/DAY (ONE TABLET EVERY 12 HOURS)
     Route: 048
     Dates: start: 20100806, end: 20100827
  2. VIBRAMICINA [Suspect]
     Indication: PELVIC INFLAMMATORY DISEASE
  3. VERAPAMIL [Concomitant]
     Indication: TACHYCARDIA
     Dosage: 80 MG, UNK
  4. ITRACONAZOLE [Concomitant]
     Indication: CANDIDIASIS
     Dosage: UNK
     Dates: start: 20100805

REACTIONS (1)
  - TACHYCARDIA [None]
